FAERS Safety Report 12119850 (Version 1)
Quarter: 2016Q1

REPORT INFORMATION
  Report Type: Other
  Country: DE (occurrence: DE)
  Receive Date: 20160226
  Receipt Date: 20160226
  Transmission Date: 20160526
  Serious: Yes (Other)
  Sender: FDA-Public Use
  Company Number: DE-MYLANLABS-2016M1007140

PATIENT

DRUGS (5)
  1. METOPROLOL SUCCINATE. [Concomitant]
     Active Substance: METOPROLOL SUCCINATE
     Indication: HYPERTENSION
     Dosage: 23.25 MG, QD (DAILY DOSE: 23.25 MG MILLGRAM(S) EVERY DAYS)
     Route: 048
  2. L-THYROXIN [Concomitant]
     Active Substance: LEVOTHYROXINE SODIUM
     Indication: HYPOTHYROIDISM
     Dosage: 100 ?G, QD (DAILY DOSE: 100 ?G MICROGRAM(S) EVERY DAYS)
     Route: 048
  3. NOVAMINSULFON [Concomitant]
     Active Substance: METAMIZOLE
     Indication: OSTEOARTHRITIS
     Dosage: 30 GTT, UNK
     Route: 048
  4. PANTOPRAZOLE MYLAN [Suspect]
     Active Substance: PANTOPRAZOLE SODIUM
     Dosage: 60 MG, BID (DAILY DOSE: 120 MG MILLGRAM(S) EVERY DAYS)
     Route: 048
     Dates: start: 20151210
  5. PANTOPRAZOLE MYLAN [Suspect]
     Active Substance: PANTOPRAZOLE SODIUM
     Indication: GASTRIC ULCER
     Dosage: 40 MG, BID (DAILY DOSE: 80 MG MILLGRAM(S) EVERY DAYS)
     Route: 048
     Dates: start: 20150205, end: 20151209

REACTIONS (1)
  - Hyperparathyroidism [Not Recovered/Not Resolved]

NARRATIVE: CASE EVENT DATE: 20151208
